FAERS Safety Report 7021943-9 (Version None)
Quarter: 2010Q3

REPORT INFORMATION
  Report Type: 
  Country: None (occurrence: None)
  Receive Date: 20100930
  Receipt Date: 20100914
  Transmission Date: 20110219
  Serious: Yes (Hospitalization, Other)
  Sender: FDA-Public Use
  Company Number: US-BAYER-200942709NA

PATIENT
  Age: 31 Year
  Sex: Female
  Weight: 79 kg

DRUGS (2)
  1. YAZ [Suspect]
     Indication: PREMENSTRUAL SYNDROME
     Route: 048
     Dates: start: 20070101, end: 20070301
  2. YASMIN [Suspect]
     Indication: PREMENSTRUAL SYNDROME
     Route: 048
     Dates: start: 20061001, end: 20070101

REACTIONS (2)
  - CEREBROVASCULAR ACCIDENT [None]
  - INJURY [None]
